FAERS Safety Report 23268438 (Version 1)
Quarter: 2023Q4

REPORT INFORMATION
  Report Type: Spontaneous
  Country: TR (occurrence: TR)
  Receive Date: 20231206
  Receipt Date: 20231206
  Transmission Date: 20240110
  Serious: Yes (Death, Other)
  Sender: FDA-Public Use
  Company Number: TR-BAYER-2023A172514

PATIENT
  Age: 53 Year
  Sex: Female

DRUGS (1)
  1. YASMIN [Suspect]
     Active Substance: DROSPIRENONE\ETHINYL ESTRADIOL
     Indication: Menstruation irregular
     Dosage: UNK
     Route: 048

REACTIONS (4)
  - Circulatory collapse [Fatal]
  - Myocardial infarction [Fatal]
  - Off label use [None]
  - Prescription drug used without a prescription [None]
